FAERS Safety Report 11724999 (Version 3)
Quarter: 2018Q3

REPORT INFORMATION
  Report Type: Spontaneous
  Country: IT (occurrence: IT)
  Receive Date: 20151111
  Receipt Date: 20180726
  Transmission Date: 20181010
  Serious: Yes (Life-Threatening, Hospitalization, Other)
  Sender: FDA-Public Use
  Company Number: IT-ASTRAZENECA-2015SF08245

PATIENT
  Age: 72 Year
  Sex: Female

DRUGS (22)
  1. RIVOTRIL [Suspect]
     Active Substance: CLONAZEPAM
     Dosage: 15 GTT, DAILY
     Route: 065
     Dates: start: 2015, end: 2015
  2. OLANZAPINE. [Suspect]
     Active Substance: OLANZAPINE
     Route: 065
     Dates: start: 2015, end: 2015
  3. OLANZAPINE. [Suspect]
     Active Substance: OLANZAPINE
     Route: 065
     Dates: start: 201501, end: 201503
  4. TRIAZOLAM. [Suspect]
     Active Substance: TRIAZOLAM
     Dosage: 0.25 MG, 20 GIT, AT NIGHT
     Route: 065
  5. TIROSINT [Suspect]
     Active Substance: LEVOTHYROXINE SODIUM
     Indication: HYPOTHYROIDISM
     Dosage: 25 MG, UNKNOWN
     Route: 065
  6. PANTOPRAZOLE [Suspect]
     Active Substance: PANTOPRAZOLE
     Route: 065
  7. ATORVASTATIN [Suspect]
     Active Substance: ATORVASTATIN
     Route: 065
  8. LORAZEPAM. [Suspect]
     Active Substance: LORAZEPAM
     Dosage: 68 DROPS DAILY
     Route: 065
  9. CARDIOASPIRIN [Suspect]
     Active Substance: ASPIRIN
     Dosage: DAILY
     Route: 065
  10. BRILIQUE [Suspect]
     Active Substance: TICAGRELOR
     Route: 048
  11. LORAZEPAM. [Suspect]
     Active Substance: LORAZEPAM
     Dosage: 1 MG, 20 GTT, AT NIGHT
     Route: 065
     Dates: start: 2015, end: 2015
  12. TRITTICO [Suspect]
     Active Substance: TRAZODONE HYDROCHLORIDE
     Dosage: 60 MG/ML, 15 GTT, AT NIGHT
     Route: 065
  13. RIVOTRIL [Suspect]
     Active Substance: CLONAZEPAM
     Dosage: 18 GTT, DAILY
     Route: 065
     Dates: start: 2015, end: 2015
  14. RIVOTRIL [Suspect]
     Active Substance: CLONAZEPAM
     Dosage: 10 GTT, DAILY
     Route: 065
     Dates: start: 2015, end: 2015
  15. LORAZEPAM. [Suspect]
     Active Substance: LORAZEPAM
     Dosage: 0.9 MG, 18 GTT, AT NIGHT
     Route: 065
     Dates: start: 2015, end: 2015
  16. TRITTICO [Suspect]
     Active Substance: TRAZODONE HYDROCHLORIDE
     Dosage: 10 GTT, UNKNOWN
     Route: 065
     Dates: start: 2015
  17. TRITTICO [Suspect]
     Active Substance: TRAZODONE HYDROCHLORIDE
     Dosage: 13 GTT, AT NIGHT
     Route: 065
     Dates: start: 201501, end: 201507
  18. LOPRESSOR [Suspect]
     Active Substance: METOPROLOL TARTRATE
     Route: 048
  19. QUETIAPINE. [Suspect]
     Active Substance: QUETIAPINE
     Route: 048
  20. OLANZAPINE. [Suspect]
     Active Substance: OLANZAPINE
     Route: 065
     Dates: start: 201503
  21. RIVOTRIL [Suspect]
     Active Substance: CLONAZEPAM
     Dosage: 1.8 MG, 28 GTT, AT NIGHT
     Route: 065
  22. LORAZEPAM. [Suspect]
     Active Substance: LORAZEPAM
     Dosage: 0.75 MG, 15 GTT, TWO TIMES A DAY
     Route: 065
     Dates: start: 2015, end: 2015

REACTIONS (12)
  - Electrocardiogram QT prolonged [Unknown]
  - Malaise [Unknown]
  - Suicide attempt [Unknown]
  - Electrocardiogram T wave inversion [Unknown]
  - Hypothyroidism [Unknown]
  - Fatigue [Unknown]
  - Discomfort [Unknown]
  - Epistaxis [Unknown]
  - Feeling cold [Unknown]
  - Weight increased [Unknown]
  - Dyspnoea [Unknown]
  - Myocardial ischaemia [Unknown]

NARRATIVE: CASE EVENT DATE: 201507
